FAERS Safety Report 5822785-X (Version None)
Quarter: 2008Q3

REPORT INFORMATION
  Report Type: 
  Country: None (occurrence: None)
  Receive Date: 20080725
  Receipt Date: 20071002
  Transmission Date: 20090109
  Serious: No
  Sender: FDA-Public Use
  Company Number: US-AMGEN-KDL232042

PATIENT
  Sex: Female
  Weight: 84 kg

DRUGS (7)
  1. PROCRIT [Suspect]
     Indication: ANAEMIA
     Dates: start: 20070201, end: 20070401
  2. TOPRAL [Concomitant]
  3. COUMADIN [Concomitant]
  4. LIPITOR [Concomitant]
  5. NIFEDIPINE [Concomitant]
  6. NEXIUM [Concomitant]
  7. SPIRONOLACTONE [Concomitant]

REACTIONS (5)
  - BLOOD CREATININE INCREASED [None]
  - BLOOD PRESSURE INCREASED [None]
  - DYSPNOEA [None]
  - PRURITUS GENERALISED [None]
  - RASH GENERALISED [None]
